FAERS Safety Report 5016225-0 (Version None)
Quarter: 2006Q2

REPORT INFORMATION
  Report Type: 
  Country: None (occurrence: None)
  Receive Date: 20060414
  Receipt Date: 20060124
  Transmission Date: 20061013
  Serious: No
  Sender: FDA-Public Use
  Company Number: 2006SP000416

PATIENT
  Age: 48 Year
  Sex: Male
  Weight: 108.8633 kg

DRUGS (5)
  1. LUNESTA [Suspect]
     Indication: INSOMNIA
     Dosage: 3MG, ORAL, 6MG; ORAL, 24 MG; ORAL
     Route: 048
     Dates: start: 20060116, end: 20060116
  2. LUNESTA [Suspect]
     Indication: INSOMNIA
     Dosage: 3MG, ORAL, 6MG; ORAL, 24 MG; ORAL
     Route: 048
     Dates: start: 20050101
  3. LUNESTA [Suspect]
     Indication: INSOMNIA
     Dosage: 3MG, ORAL, 6MG; ORAL, 24 MG; ORAL
     Route: 048
     Dates: start: 20050101
  4. CYMBALTA [Concomitant]
  5. KLONOPIN [Concomitant]

REACTIONS (1)
  - INSOMNIA [None]
